FAERS Safety Report 6289640-5 (Version None)
Quarter: 2009Q3

REPORT INFORMATION
  Report Type: 
  Country: None (occurrence: None)
  Receive Date: 20090730
  Receipt Date: 20000918
  Transmission Date: 20100115
  Serious: No
  Sender: FDA-Public Use
  Company Number: 2000COU1157

PATIENT
  Age: 40 Year
  Sex: Female

DRUGS (1)
  1. COUMADIN [Suspect]
     Indication: PULMONARY INFARCTION
     Dosage: 5 MG AES#DOSE_FREQUENCY: UNK
     Route: 048

REACTIONS (1)
  - PREGNANCY [None]
